FAERS Safety Report 6742840-X (Version None)
Quarter: 2010Q2

REPORT INFORMATION
  Report Type: 
  Country: None (occurrence: None)
  Receive Date: 20100525
  Receipt Date: 20100513
  Transmission Date: 20101027
  Serious: Yes (Hospitalization)
  Sender: FDA-Public Use
  Company Number: PR-000352

PATIENT
  Age: 3 Year
  Sex: Male
  Weight: 20.4119 kg

DRUGS (3)
  1. KUVAN [Suspect]
     Indication: PHENYLKETONURIA
     Dosage: (200 MG BID ORAL)
     Route: 048
     Dates: start: 20100317
  2. LEVOCARNITINE [Concomitant]
  3. LAMICTAL [Concomitant]

REACTIONS (8)
  - DRUG INTOLERANCE [None]
  - FEELING COLD [None]
  - GASTRIC DISORDER [None]
  - NASOPHARYNGITIS [None]
  - RHINORRHOEA [None]
  - VIRAL INFECTION [None]
  - VOMITING [None]
  - WHITE BLOOD CELL COUNT INCREASED [None]
